FAERS Safety Report 4364606-0 (Version None)
Quarter: 2004Q2

REPORT INFORMATION
  Report Type: 
  Country: None (occurrence: None)
  Receive Date: 20040521
  Receipt Date: 20040510
  Transmission Date: 20050107
  Serious: Yes (Hospitalization)
  Sender: FDA-Public Use
  Company Number: 04P-163-0257028-00

PATIENT
  Age: 74 Year
  Sex: Male
  Weight: 83.9154 kg

DRUGS (13)
  1. HUMIRA [Suspect]
     Indication: RHEUMATOID ARTHRITIS
     Dosage: 40 MG, 1 IN 2 WK, SUBCUTANEOUS
     Route: 058
     Dates: start: 20030407, end: 20040224
  2. WARFARIN SODIUM [Suspect]
     Dosage: PER ORAL
     Route: 048
     Dates: end: 20040308
  3. ENALAPRIL MALEATE [Concomitant]
  4. METOPROLOL TARTRATE [Concomitant]
  5. ISOSORBIDE MONONITRATE [Concomitant]
  6. DOCUSATE SODIUM [Concomitant]
  7. POTASSIUM [Concomitant]
  8. PROPACET 100 [Concomitant]
  9. CALCIUM CARBONATE [Concomitant]
  10. METHYLPREDNISOLONE [Concomitant]
  11. ALENDRONATE SODIUM [Concomitant]
  12. CELECOXIB [Concomitant]
  13. FOSINOPRIL SODIUM [Concomitant]

REACTIONS (7)
  - ACCIDENTAL NEEDLE STICK [None]
  - ARTHRALGIA [None]
  - BACK PAIN [None]
  - INTERVERTEBRAL DISC PROTRUSION [None]
  - POLYP [None]
  - SEPSIS [None]
  - VASCULAR RUPTURE [None]
